FAERS Safety Report 4703970-7 (Version None)
Quarter: 2005Q2

REPORT INFORMATION
  Report Type: 
  Country: None (occurrence: None)
  Receive Date: 20050628
  Receipt Date: 20050613
  Transmission Date: 20051028
  Serious: Yes (Death)
  Sender: FDA-Public Use
  Company Number: USA050598934

PATIENT
  Sex: Male
  Weight: 3 kg

DRUGS (1)
  1. ZYPREXA [Suspect]
     Dates: start: 20050101

REACTIONS (3)
  - FOETAL HEART RATE DECELERATION [None]
  - INTRA-UTERINE DEATH [None]
  - MATERNAL DRUGS AFFECTING FOETUS [None]
